FAERS Safety Report 4761391-5 (Version None)
Quarter: 2005Q3

REPORT INFORMATION
  Report Type: 
  Country: None (occurrence: None)
  Receive Date: 20050830
  Receipt Date: 20040726
  Transmission Date: 20060218
  Serious: Yes (Other)
  Sender: FDA-Public Use
  Company Number: PHEH2004US07383

PATIENT
  Age: 85 Year
  Sex: Male
  Weight: 77.6 kg

DRUGS (1)
  1. FAMVIR [Suspect]
     Indication: VIRAL INFECTION
     Dosage: 500 MG, QD, ORAL
     Route: 048
     Dates: start: 20040608

REACTIONS (6)
  - BIOPSY SKIN [None]
  - DERMATITIS EXFOLIATIVE [None]
  - DRY SKIN [None]
  - EXFOLIATIVE RASH [None]
  - PRURITUS [None]
  - RASH [None]
